FAERS Safety Report 6822237-4 (Version None)
Quarter: 2010Q3

REPORT INFORMATION
  Report Type: 
  Country: None (occurrence: None)
  Receive Date: 20100708
  Receipt Date: 20100706
  Transmission Date: 20110219
  Serious: Yes (Hospitalization, Other)
  Sender: FDA-Public Use
  Company Number: ZA-SANOFI-AVENTIS-200921843GDDC

PATIENT
  Age: 26 Year
  Sex: Female

DRUGS (5)
  1. LANTUS [Suspect]
     Route: 058
     Dates: start: 20090701
  2. SOLOSTAR [Suspect]
     Indication: TYPE 2 DIABETES MELLITUS
     Dates: start: 20090701
  3. APIDRA SOLOSTAR [Suspect]
     Dates: start: 20090801
  4. SOLOSTAR [Suspect]
     Dates: start: 20090801
  5. MULTI-VITAMINS [Concomitant]
     Route: 048

REACTIONS (2)
  - COLORECTAL CANCER [None]
  - DRUG EXPOSURE DURING PREGNANCY [None]
